FAERS Safety Report 17604566 (Version 1)
Quarter: 2020Q1

REPORT INFORMATION
  Report Type: Spontaneous
  Country: US (occurrence: US)
  Receive Date: 20200328
  Receipt Date: 20200328
  Transmission Date: 20200409
  Serious: Yes (Death)
  Sender: FDA-Public Use
  Company Number: None

PATIENT
  Age: 19 Month
  Sex: Female

DRUGS (1)
  1. VIGABATRIN POWDER 500MG PAR [Suspect]
     Active Substance: VIGABATRIN
     Indication: STATUS EPILEPTICUS
     Dosage: ?          OTHER ROUTE:G-TUBE?
     Dates: start: 20191206

REACTIONS (2)
  - Ill-defined disorder [None]
  - Nasopharyngitis [None]

NARRATIVE: CASE EVENT DATE: 20200227
